FAERS Safety Report 7821340 (Version 3)
Quarter: 2012Q4

REPORT INFORMATION
  Report Type: 
  Country: US (occurrence: US)
  Receive Date: 20110222
  Receipt Date: 20120911
  Transmission Date: 20130627
  Serious: Yes (Hospitalization)
  Sender: FDA-Public Use
  Company Number: US-B.I. PHARMACEUTICALS,INC./RIDGEFIELD-2010-BP-14436BP

PATIENT
  Age: 80 Year
  Sex: Male

DRUGS (20)
  1. PRADAXA [Suspect]
     Indication: ATRIAL FIBRILLATION
     Dosage: 300 mg
     Route: 048
     Dates: start: 201011, end: 20110406
  2. PRADAXA [Suspect]
     Dosage: 300 mg
     Route: 048
     Dates: start: 20110416
  3. ASTEPROL [Concomitant]
     Indication: HYPERSENSITIVITY
     Dosage: 1 spray in each nostril
     Dates: start: 201011
  4. COMGIGAN [Concomitant]
     Indication: GLAUCOMA
     Dates: start: 2009
  5. FLOMAX [Concomitant]
     Indication: PROSTATOMEGALY
     Dosage: 0.4 mg
     Dates: start: 2007
  6. FOLIC ACID [Concomitant]
     Dosage: 1 mg
     Dates: start: 2002
  7. COQ10 [Concomitant]
     Indication: PROPHYLAXIS
     Dosage: 100 mg
     Dates: start: 2003
  8. CALCIUM [Concomitant]
     Indication: PROPHYLAXIS
     Dosage: 100 mg
     Route: 048
     Dates: start: 2003
  9. COSAMIN DS [Concomitant]
     Indication: PROPHYLAXIS
     Route: 048
     Dates: start: 2003
  10. OMEGA 3 FISH OIL [Concomitant]
     Indication: PROPHYLAXIS
     Dosage: 1000 mg
     Route: 048
     Dates: start: 2009
  11. LIPITOR [Concomitant]
     Indication: BLOOD CHOLESTEROL INCREASED
     Dosage: 10 mg
     Route: 048
     Dates: start: 2002
  12. NASAL CORT [Concomitant]
     Indication: HYPERSENSITIVITY
     Route: 045
     Dates: start: 2007
  13. MICARDIS HCT [Concomitant]
     Indication: HYPERTENSION
     Dosage: 40 mg
     Route: 048
     Dates: start: 2002
  14. PROSCAR [Concomitant]
     Indication: PROSTATOMEGALY
     Dosage: 5 mg
     Route: 048
     Dates: start: 2009
  15. TOPROL XL [Concomitant]
     Indication: HYPERTENSION
     Dosage: 25 mg
     Route: 048
     Dates: start: 2002
  16. VITAMIN B12 [Concomitant]
     Indication: PROPHYLAXIS
     Dosage: 1000 mg
     Route: 048
     Dates: start: 2002
  17. XALATAN [Concomitant]
     Indication: GLAUCOMA
     Route: 048
     Dates: start: 1990
  18. BABY ASPIRIN [Concomitant]
     Indication: PROPHYLAXIS
     Dosage: 81 mg
     Route: 048
     Dates: start: 2002
  19. SUPER BETA PROSTATE [Concomitant]
     Indication: PROPHYLAXIS
     Dosage: 1200 mg
     Route: 048
     Dates: start: 2003
  20. VITAMIN D [Concomitant]
     Indication: PROPHYLAXIS
     Dosage: 1000 U
     Route: 048
     Dates: start: 2009

REACTIONS (7)
  - Haemorrhage [Unknown]
  - Haematuria [Unknown]
  - Prostatomegaly [Recovered/Resolved]
  - Malaise [Unknown]
  - Abdominal discomfort [Recovered/Resolved]
  - Abdominal pain upper [Recovered/Resolved]
  - Cataract [Not Recovered/Not Resolved]
